FAERS Safety Report 19093578 (Version 1)
Quarter: 2021Q2

REPORT INFORMATION
  Report Type: Other
  Country: BR (occurrence: BR)
  Receive Date: 20210405
  Receipt Date: 20210405
  Transmission Date: 20210717
  Serious: Yes (Hospitalization)
  Sender: FDA-Public Use
  Company Number: BR-ROCHE-2800839

PATIENT
  Age: 70 Year
  Sex: Female

DRUGS (9)
  1. DOXORUBICIN [Suspect]
     Active Substance: DOXORUBICIN
     Indication: DIFFUSE LARGE B-CELL LYMPHOMA
     Route: 065
     Dates: start: 201706
  2. SULFAMETHOXAZOLE/TRIMETHOPRIM [Concomitant]
     Active Substance: SULFAMETHOXAZOLE\TRIMETHOPRIM
     Dosage: 800/160 MG
  3. VINCRISTINE [Suspect]
     Active Substance: VINCRISTINE
     Indication: DIFFUSE LARGE B-CELL LYMPHOMA
     Route: 065
     Dates: start: 201706
  4. CYCLOPHOSPHAMIDE. [Suspect]
     Active Substance: CYCLOPHOSPHAMIDE
     Indication: DIFFUSE LARGE B-CELL LYMPHOMA
     Route: 065
     Dates: start: 201706
  5. OMEPRAZOLE. [Concomitant]
     Active Substance: OMEPRAZOLE
  6. RIVAROXABAN [Concomitant]
     Active Substance: RIVAROXABAN
  7. RITUXIMAB. [Suspect]
     Active Substance: RITUXIMAB
     Indication: DIFFUSE LARGE B-CELL LYMPHOMA
     Route: 065
     Dates: start: 201706
  8. CHLORTALIDONE [Concomitant]
     Active Substance: CHLORTHALIDONE
  9. BROMOPRIDE [Concomitant]
     Active Substance: BROMOPRIDE

REACTIONS (6)
  - Pancytopenia [Recovered/Resolved]
  - Febrile neutropenia [Recovering/Resolving]
  - Acute kidney injury [Recovered/Resolved]
  - Mucosal inflammation [Recovering/Resolving]
  - Oral disorder [Recovering/Resolving]
  - Diarrhoea [Recovered/Resolved]
